FAERS Safety Report 11275585 (Version 1)
Quarter: 2015Q3

REPORT INFORMATION
  Report Type: Spontaneous
  Country: US (occurrence: None)
  Receive Date: 20150715
  Receipt Date: 20150715
  Transmission Date: 20151125
  Serious: No
  Sender: FDA-Public Use
  Company Number: None

PATIENT
  Age: 62 Year
  Sex: Male

DRUGS (1)
  1. ENOXAPARIN [Suspect]
     Active Substance: ENOXAPARIN
     Dosage: 40 MG DAILY SQ
     Route: 058
     Dates: start: 20150304, end: 20150507

REACTIONS (2)
  - Device difficult to use [None]
  - Injection site bruising [None]

NARRATIVE: CASE EVENT DATE: 20150304
